FAERS Safety Report 6887349-8 (Version None)
Quarter: 2010Q3

REPORT INFORMATION
  Report Type: 
  Country: None (occurrence: None)
  Receive Date: 20100730
  Receipt Date: 20090914
  Transmission Date: 20110219
  Serious: No
  Sender: FDA-Public Use
  Company Number: A0807881A

PATIENT
  Age: 62 Year
  Sex: Female

DRUGS (10)
  1. IMITREX [Suspect]
     Indication: MIGRAINE
     Dosage: 100MG UNKNOWN
     Route: 048
  2. EFFEXOR [Concomitant]
  3. REMERON [Concomitant]
  4. FLEXERIL [Concomitant]
  5. SYNTHROID [Concomitant]
  6. SIMVASTATIN [Concomitant]
  7. TOPAMAX [Concomitant]
  8. HYCODAN [Concomitant]
  9. TRAMADOL HYDROCHLORIDE [Concomitant]
  10. ULTRAM [Concomitant]

REACTIONS (2)
  - DRUG INTERACTION [None]
  - MEDICATION ERROR [None]
